FAERS Safety Report 24750655 (Version 2)
Quarter: 2024Q4

REPORT INFORMATION
  Report Type: Report from Study
  Country: US (occurrence: US)
  Receive Date: 20241218
  Receipt Date: 20241229
  Transmission Date: 20250114
  Serious: Yes (Hospitalization, Other)
  Sender: AMNEAL
  Company Number: US-AMNEAL PHARMACEUTICALS-2024-AMRX-04545

PATIENT
  Sex: Male

DRUGS (3)
  1. CARBIDOPA\LEVODOPA [Suspect]
     Active Substance: CARBIDOPA\LEVODOPA
     Indication: Product used for unknown indication
     Dosage: 23.75-95 MG 1 CAPSULES, 7/DAY AS  SCHEDULE
     Route: 048
  2. CARBIDOPA\LEVODOPA [Suspect]
     Active Substance: CARBIDOPA\LEVODOPA
     Dosage: 23.75-95 MG (TAKE 1 CAPSULE 4 TIMES A DAY) AND 36.25-145 MG (TAKE 1 CAPSULE TWICE DAILY)
     Route: 048
     Dates: start: 20221121
  3. CARBIDOPA\LEVODOPA [Suspect]
     Active Substance: CARBIDOPA\LEVODOPA
     Dosage: 23.75-95 MG TAKE 1 CAPSULE BY MOUTH 6 TIMES A DAY
     Route: 048
     Dates: start: 20240122

REACTIONS (1)
  - Compression fracture [Unknown]
